FAERS Safety Report 7773481-3 (Version None)
Quarter: 2011Q3

REPORT INFORMATION
  Report Type: 
  Country: None (occurrence: None)
  Receive Date: 20110922
  Receipt Date: 20110914
  Transmission Date: 20111222
  Serious: Yes (Hospitalization, Other)
  Sender: FDA-Public Use
  Company Number: US-RB-032170-11

PATIENT
  Age: 47 Year
  Sex: Male

DRUGS (4)
  1. KLONOPIN [Suspect]
     Indication: ANXIETY DISORDER
     Route: 048
     Dates: start: 20110501, end: 20110701
  2. SUBOXONE [Suspect]
     Indication: DRUG DEPENDENCE
     Route: 060
     Dates: start: 20110401, end: 20110701
  3. METOPROLOL TARTRATE [Suspect]
     Indication: HYPERTENSION
     Route: 048
     Dates: start: 20110101, end: 20110701
  4. AMITRIPTYLINE HCL [Suspect]
     Indication: INSOMNIA
     Route: 048
     Dates: start: 20110501, end: 20110701

REACTIONS (5)
  - CONSTIPATION [None]
  - DRUG INTERACTION [None]
  - OFF LABEL USE [None]
  - FEELING ABNORMAL [None]
  - INSOMNIA [None]
